FAERS Safety Report 5044479-3 (Version None)
Quarter: 2006Q3

REPORT INFORMATION
  Report Type: 
  Country: None (occurrence: None)
  Receive Date: 20060706
  Receipt Date: 20060516
  Transmission Date: 20061208
  Serious: Yes (Hospitalization)
  Sender: FDA-Public Use
  Company Number: FR-GLAXOSMITHKLINE-B0423918A

PATIENT
  Age: 49 Year
  Sex: Female

DRUGS (1)
  1. CLAMOXYL [Suspect]
     Indication: INFECTION
     Dosage: 1G SINGLE DOSE
     Route: 048
     Dates: start: 20060117

REACTIONS (9)
  - ANGIONEUROTIC OEDEMA [None]
  - DRUG HYPERSENSITIVITY [None]
  - DYSPNOEA [None]
  - GENERALISED ERYTHEMA [None]
  - HYPOTENSION [None]
  - ILL-DEFINED DISORDER [None]
  - LOSS OF CONSCIOUSNESS [None]
  - MALAISE [None]
  - PRURITUS [None]
